FAERS Safety Report 7880356-8 (Version None)
Quarter: 2011Q4

REPORT INFORMATION
  Report Type: 
  Country: None (occurrence: None)
  Receive Date: 20111101
  Receipt Date: 20111028
  Transmission Date: 20120403
  Serious: Yes (Death, Other)
  Sender: FDA-Public Use
  Company Number: PHHY2011IT95512

PATIENT
  Sex: Female

DRUGS (6)
  1. SIMVASTATIN [Suspect]
     Indication: HYPERCHOLESTEROLAEMIA
     Dosage: 1 DF, QD
     Route: 048
     Dates: start: 20110918, end: 20111012
  2. BISOPROLOL [Concomitant]
     Dosage: 1.25 MG, UNK
  3. COUMADIN [Concomitant]
  4. LANOXIN [Concomitant]
     Dosage: 0.125 MG, UNK
  5. ALLOPURINOL [Concomitant]
  6. RAMIPRIL [Concomitant]
     Dosage: 2.5 MG, UNK

REACTIONS (2)
  - DEATH [None]
  - RHABDOMYOLYSIS [None]
